FAERS Safety Report 6246350-8 (Version None)
Quarter: 2009Q2

REPORT INFORMATION
  Report Type: 
  Country: None (occurrence: None)
  Receive Date: 20090626
  Receipt Date: 20090615
  Transmission Date: 20091009
  Serious: Yes (Hospitalization)
  Sender: FDA-Public Use
  Company Number: FR-CELGENEUS-056-20484-09061140

PATIENT
  Sex: Male

DRUGS (2)
  1. INNOHEP [Suspect]
     Indication: ANTICOAGULANT THERAPY
     Route: 058
     Dates: start: 20090327, end: 20090403
  2. SINTROM [Suspect]
     Indication: THROMBOSIS PROPHYLAXIS
     Route: 065
     Dates: start: 20090329, end: 20090403

REACTIONS (2)
  - MALAISE [None]
  - RECTAL HAEMORRHAGE [None]
